FAERS Safety Report 22936113 (Version 3)
Quarter: 2023Q4

REPORT INFORMATION
  Report Type: Spontaneous
  Country: US (occurrence: US)
  Receive Date: 20230912
  Receipt Date: 20231120
  Transmission Date: 20240110
  Serious: No
  Sender: FDA-Public Use
  Company Number: US-JNJFOC-20230913680

PATIENT
  Age: 34 Year
  Sex: Male

DRUGS (4)
  1. SPRAVATO [Suspect]
     Active Substance: ESKETAMINE
     Indication: Major depression
     Dosage: 28 MG PER APPLICATOR 3 NASAL ROUTE, CONTINUOUS BI-WEEKLY MAINTENANCE TREATMENT
     Route: 045
     Dates: start: 20230829
  2. SPRAVATO [Suspect]
     Active Substance: ESKETAMINE
     Route: 045
  3. WELLBUTRIN [Concomitant]
     Active Substance: BUPROPION HYDROCHLORIDE
     Indication: Depression
     Route: 065
     Dates: start: 202107
  4. ZOLOFT [Concomitant]
     Active Substance: SERTRALINE HYDROCHLORIDE
     Indication: Anxiety
     Route: 065
     Dates: start: 202107

REACTIONS (2)
  - Device issue [Unknown]
  - Underdose [Unknown]

NARRATIVE: CASE EVENT DATE: 20230829
